FAERS Safety Report 13265435 (Version 1)
Quarter: 2017Q1

REPORT INFORMATION
  Report Type: Spontaneous
  Country: US (occurrence: US)
  Receive Date: 20170223
  Receipt Date: 20170223
  Transmission Date: 20170428
  Serious: Yes (Other)
  Sender: FDA-Public Use
  Company Number: US-BAYER-2017-032459

PATIENT
  Sex: Female

DRUGS (1)
  1. MIRENA [Suspect]
     Active Substance: LEVONORGESTREL
     Dosage: 20 MCG/24HR, CONT
     Route: 015
     Dates: start: 20170215

REACTIONS (4)
  - Deafness transitory [Recovering/Resolving]
  - Loss of consciousness [Recovering/Resolving]
  - Fatigue [None]
  - Emotional disorder [Recovering/Resolving]

NARRATIVE: CASE EVENT DATE: 20170215
